FAERS Safety Report 19695466 (Version 1)
Quarter: 2021Q3

REPORT INFORMATION
  Report Type: Spontaneous
  Country: CN (occurrence: CN)
  Receive Date: 20210813
  Receipt Date: 20210813
  Transmission Date: 20211014
  Serious: Yes (Death, Hospitalization, Other)
  Sender: FDA-Public Use
  Company Number: CN-LEADINGPHARMA-CN-2021LEALIT00252

PATIENT
  Age: 77 Year
  Sex: Male

DRUGS (2)
  1. ALFAFERONE [INTERFERON ALFA] [Suspect]
     Active Substance: INTERFERON ALFA-N3
     Indication: MYELOPROLIFERATIVE NEOPLASM
     Route: 065
  2. HYDROXYUREA. [Suspect]
     Active Substance: HYDROXYUREA
     Indication: MYELOPROLIFERATIVE NEOPLASM
     Route: 065

REACTIONS (1)
  - Acute myeloid leukaemia [Fatal]
